FAERS Safety Report 9523083 (Version 2)
Quarter: 2013Q4

REPORT INFORMATION
  Report Type: Spontaneous
  Country: US (occurrence: US)
  Receive Date: 20130913
  Receipt Date: 20131014
  Transmission Date: 20140711
  Serious: No
  Sender: FDA-Public Use
  Company Number: US-PFIZER INC-2013261601

PATIENT
  Age: 56 Year
  Sex: Male
  Weight: 70.3 kg

DRUGS (2)
  1. DEPO-MEDROL [Suspect]
     Dosage: UNK, ONE DOSE
     Route: 008
     Dates: start: 20130819, end: 20130820
  2. OMEPRAZOLE [Concomitant]
     Indication: GASTROOESOPHAGEAL REFLUX DISEASE
     Dosage: 40 MG, 1X/DAY

REACTIONS (14)
  - Incorrect route of drug administration [Unknown]
  - Headache [Recovering/Resolving]
  - Pruritus [Recovering/Resolving]
  - Hot flush [Recovering/Resolving]
  - Nausea [Recovering/Resolving]
  - Rhinorrhoea [Recovering/Resolving]
  - Dizziness [Recovering/Resolving]
  - Diarrhoea [Recovering/Resolving]
  - Abdominal discomfort [Recovering/Resolving]
  - Gastrointestinal sounds abnormal [Recovering/Resolving]
  - Paraesthesia [Recovering/Resolving]
  - Musculoskeletal stiffness [Recovering/Resolving]
  - Pharyngeal oedema [Recovering/Resolving]
  - Malaise [Recovering/Resolving]
